FAERS Safety Report 9539268 (Version 1)
Quarter: 2013Q3

REPORT INFORMATION
  Report Type: Report from Study
  Country: DE (occurrence: DE)
  Receive Date: 20130920
  Receipt Date: 20130920
  Transmission Date: 20140515
  Serious: Yes (Hospitalization, Other)
  Sender: FDA-Public Use
  Company Number: DE-ABBVIE-13P-062-1148621-00

PATIENT
  Age: 23 Year
  Sex: Male

DRUGS (2)
  1. HUMIRA [Suspect]
     Indication: CROHN^S DISEASE
     Dates: start: 20130904
  2. CORTISONE [Concomitant]
     Indication: PRODUCT USED FOR UNKNOWN INDICATION

REACTIONS (3)
  - Sports injury [Unknown]
  - Upper limb fracture [Recovering/Resolving]
  - Bone density abnormal [Not Recovered/Not Resolved]
